FAERS Safety Report 4424402-2 (Version None)
Quarter: 2004Q3

REPORT INFORMATION
  Report Type: 
  Country: None (occurrence: None)
  Receive Date: 20040812
  Receipt Date: 20040803
  Transmission Date: 20050211
  Serious: Yes (Hospitalization)
  Sender: FDA-Public Use
  Company Number: EMADSS2002006993

PATIENT
  Age: 59 Year
  Sex: Male

DRUGS (9)
  1. RISPERDAL [Suspect]
     Route: 049
     Dates: start: 20020124, end: 20020729
  2. RISPERDAL [Suspect]
     Route: 049
     Dates: start: 20020124, end: 20020729
  3. RISPERDAL [Suspect]
     Route: 049
     Dates: start: 20020124, end: 20020729
  4. XIMOVAN [Concomitant]
     Indication: DRUG USE FOR UNKNOWN INDICATION
     Route: 049
     Dates: start: 20020219, end: 20020804
  5. PANTOPRAZOLE SODIUM [Concomitant]
     Indication: DRUG USE FOR UNKNOWN INDICATION
     Route: 049
     Dates: start: 20020227
  6. ALLOPURINOL [Concomitant]
     Route: 049
     Dates: start: 20020315
  7. ALLOPURINOL [Concomitant]
     Indication: DRUG USE FOR UNKNOWN INDICATION
     Route: 049
     Dates: start: 20020315
  8. FOLSAN [Concomitant]
     Route: 049
     Dates: start: 20020125, end: 20020710
  9. FOLSAN [Concomitant]
     Indication: DRUG USE FOR UNKNOWN INDICATION
     Route: 049
     Dates: start: 20020125, end: 20020710

REACTIONS (1)
  - THROMBOCYTOPENIA [None]
